FAERS Safety Report 6464848-4 (Version None)
Quarter: 2009Q4

REPORT INFORMATION
  Report Type: 
  Country: None (occurrence: None)
  Receive Date: 20091201
  Receipt Date: 20091124
  Transmission Date: 20100525
  Serious: Yes (Hospitalization)
  Sender: FDA-Public Use
  Company Number: A0826654A

PATIENT
  Sex: Male

DRUGS (11)
  1. ADVAIR DISKUS 100/50 [Suspect]
     Indication: ASTHMA
     Dosage: 1PUFF TWICE PER DAY
     Route: 055
     Dates: start: 20030101
  2. PRAVACHOL [Concomitant]
  3. LISINOPRIL [Concomitant]
  4. CARVEDILOL [Concomitant]
  5. PLAVIX [Concomitant]
  6. ASPIRIN [Concomitant]
  7. GARLIC [Concomitant]
  8. FISH OIL [Concomitant]
  9. CENTRUM SILVER [Concomitant]
  10. ALBUTEROL [Concomitant]
  11. ATROVENT [Concomitant]

REACTIONS (8)
  - ASTHMA [None]
  - DERMATITIS CONTACT [None]
  - FATIGUE [None]
  - FEELING JITTERY [None]
  - INFECTION [None]
  - MOLE EXCISION [None]
  - MYOCARDIAL INFARCTION [None]
  - RASH [None]
